FAERS Safety Report 20164584 (Version 1)
Quarter: 2021Q4

REPORT INFORMATION
  Report Type: Spontaneous
  Country: US (occurrence: None)
  Receive Date: 20211208
  Receipt Date: 20211208
  Transmission Date: 20220303
  Serious: Yes (Hospitalization)
  Sender: FDA-Public Use
  Company Number: None

PATIENT
  Age: 72 Year
  Sex: Female

DRUGS (1)
  1. ADEMPAS [Suspect]
     Active Substance: RIOCIGUAT
     Indication: Heritable pulmonary arterial hypertension
     Dosage: FREQUENCY : TWICE A DAY;?
     Route: 048
     Dates: start: 20180413

REACTIONS (1)
  - Acute respiratory failure [None]

NARRATIVE: CASE EVENT DATE: 20211109
